FAERS Safety Report 7844701-1 (Version None)
Quarter: 2011Q4

REPORT INFORMATION
  Report Type: 
  Country: None (occurrence: None)
  Receive Date: 20111020
  Receipt Date: 20111013
  Transmission Date: 20120403
  Serious: Yes (Hospitalization)
  Sender: FDA-Public Use
  Company Number: DSA_47868_2011

PATIENT
  Sex: Female

DRUGS (6)
  1. XENAZINE [Suspect]
     Indication: HUNTINGTON'S DISEASE
     Dosage: (12.5 MG BID) ; (25 MG BID) ; (12.5 MG BID) ; (25 MG BID)
     Dates: start: 20110606, end: 20110628
  2. XENAZINE [Suspect]
     Indication: HUNTINGTON'S DISEASE
     Dosage: (12.5 MG BID) ; (25 MG BID) ; (12.5 MG BID) ; (25 MG BID)
     Dates: start: 20110810
  3. XENAZINE [Suspect]
     Indication: HUNTINGTON'S DISEASE
     Dosage: (12.5 MG BID) ; (25 MG BID) ; (12.5 MG BID) ; (25 MG BID)
     Dates: start: 20110629, end: 20110731
  4. XENAZINE [Suspect]
     Indication: HUNTINGTON'S DISEASE
     Dosage: (12.5 MG BID) ; (25 MG BID) ; (12.5 MG BID) ; (25 MG BID)
     Dates: start: 20110801, end: 20110809
  5. TRAZODONE HYDROCHLORIDE [Concomitant]
  6. NUEDEXTA [Suspect]
     Indication: AFFECT LABILITY
     Dosage: (20/10 MG ONCE DAILY ORAL)
     Route: 048
     Dates: start: 20110801, end: 20110810

REACTIONS (8)
  - ABNORMAL BEHAVIOUR [None]
  - MENTAL DISORDER [None]
  - ACTIVITIES OF DAILY LIVING IMPAIRED [None]
  - DRUG INTERACTION [None]
  - TEARFULNESS [None]
  - COGNITIVE DISORDER [None]
  - AFFECT LABILITY [None]
  - CONDITION AGGRAVATED [None]
